FAERS Safety Report 24699823 (Version 2)
Quarter: 2025Q4

REPORT INFORMATION
  Report Type: Spontaneous
  Country: US (occurrence: US)
  Receive Date: 20241205
  Receipt Date: 20251113
  Transmission Date: 20260118
  Serious: No
  Sender: ALIMERA
  Company Number: US-EYEPOINT PHARMACEUTICALS, INC.-US-EYP-23-00295

PATIENT
  Sex: Male

DRUGS (5)
  1. YUTIQ [Suspect]
     Active Substance: FLUOCINOLONE ACETONIDE
     Indication: Cystoid macular oedema
     Dosage: 0.18 MILLIGRAM, SINGLE, BILATERAL/OU
     Route: 031
  2. YUTIQ [Suspect]
     Active Substance: FLUOCINOLONE ACETONIDE
     Indication: Cataract operation
  3. YUTIQ [Suspect]
     Active Substance: FLUOCINOLONE ACETONIDE
     Indication: Macular degeneration
  4. YUTIQ [Suspect]
     Active Substance: FLUOCINOLONE ACETONIDE
     Indication: Retinal vein occlusion
  5. YUTIQ [Suspect]
     Active Substance: FLUOCINOLONE ACETONIDE
     Indication: Macular oedema

REACTIONS (1)
  - Off label use [Unknown]
